FAERS Safety Report 5899722-5 (Version None)
Quarter: 2008Q3

REPORT INFORMATION
  Report Type: 
  Country: None (occurrence: None)
  Receive Date: 20080917
  Receipt Date: 20080904
  Transmission Date: 20090109
  Serious: Yes (Other)
  Sender: FDA-Public Use
  Company Number: THYM-1000767

PATIENT
  Age: 52 Year
  Sex: Female

DRUGS (6)
  1. THYMOGLOBULIN [Suspect]
     Indication: LUNG TRANSPLANT
     Dosage: 100 MG, ONCE, 50 MG, UNK, INTRAVENOUS
     Route: 042
     Dates: start: 20080831, end: 20080831
  2. THYMOGLOBULIN [Suspect]
     Indication: LUNG TRANSPLANT
     Dosage: 100 MG, ONCE, 50 MG, UNK, INTRAVENOUS
     Route: 042
     Dates: start: 20080901, end: 20080901
  3. TACROLIMUS [Concomitant]
  4. MYCOPHENOLATE MOFETIL [Concomitant]
  5. MEROPENEM (MEROPENEM) [Concomitant]
  6. DOBUTAMINE (DOBUTAMINE) [Concomitant]

REACTIONS (3)
  - CARDIOGENIC SHOCK [None]
  - HAEMOLYSIS [None]
  - THROMBOCYTOPENIA [None]
